FAERS Safety Report 16469321 (Version 1)
Quarter: 2019Q2

REPORT INFORMATION
  Report Type: Spontaneous
  Country: US (occurrence: US)
  Receive Date: 20190624
  Receipt Date: 20190624
  Transmission Date: 20190711
  Serious: No
  Sender: FDA-Public Use
  Company Number: US-SA-2019SA162939

PATIENT
  Sex: Female

DRUGS (1)
  1. ADLYXIN [Suspect]
     Active Substance: LIXISENATIDE
     Dosage: 10 UG
     Route: 065

REACTIONS (2)
  - Vision blurred [Unknown]
  - Palpitations [Unknown]
